FAERS Safety Report 6584403-5 (Version None)
Quarter: 2010Q1

REPORT INFORMATION
  Report Type: 
  Country: None (occurrence: None)
  Receive Date: 20100216
  Receipt Date: 20100120
  Transmission Date: 20100710
  Serious: No
  Sender: FDA-Public Use
  Company Number: US-ABBOTT-10P-163-0620585-00

PATIENT
  Sex: Male
  Weight: 103.51 kg

DRUGS (1)
  1. SIMCOR [Suspect]
     Indication: DRUG USE FOR UNKNOWN INDICATION
     Dosage: 500/20MG AT BEDTIME
     Route: 048
     Dates: start: 20090101

REACTIONS (2)
  - FEELING HOT [None]
  - PRURITUS GENERALISED [None]
